FAERS Safety Report 17687403 (Version 1)
Quarter: 2020Q2

REPORT INFORMATION
  Report Type: Spontaneous
  Country: JP (occurrence: JP)
  Receive Date: 20200421
  Receipt Date: 20200421
  Transmission Date: 20200714
  Serious: Yes (Other)
  Sender: FDA-Public Use
  Company Number: JP-TEVA-202004_00009214

PATIENT
  Age: 70 Year
  Sex: Male
  Weight: 82 kg

DRUGS (4)
  1. CANDESARTAN OD [Suspect]
     Active Substance: CANDESARTAN
     Indication: HYPERTENSION
     Dosage: 4 MILLIGRAM DAILY;
     Route: 048
     Dates: start: 20190405, end: 20190419
  2. AMLODIPINE OD TABLET 5MG ^TYK^ [Suspect]
     Active Substance: AMLODIPINE BESYLATE
     Dosage: 10 MILLIGRAM DAILY; 10 MILLIGRAM, QD
     Route: 048
     Dates: start: 20190322
  3. AMLODIPINE OD TABLET 5MG ^TYK^ [Suspect]
     Active Substance: AMLODIPINE BESYLATE
     Indication: HYPERTENSION
     Dosage: 5 MILLIGRAM DAILY;
     Route: 048
     Dates: start: 20190208, end: 20190321
  4. DURVALUMAB. [Suspect]
     Active Substance: DURVALUMAB
     Indication: NON-SMALL CELL LUNG CANCER
     Dosage: .7143 MG/KG DAILY;
     Route: 041
     Dates: start: 20190110, end: 20190524

REACTIONS (4)
  - Renal impairment [Recovering/Resolving]
  - Tubulointerstitial nephritis [Unknown]
  - Proteinuria [Recovering/Resolving]
  - Renal tubular disorder [Unknown]

NARRATIVE: CASE EVENT DATE: 20190510
